FAERS Safety Report 6787787-8 (Version None)
Quarter: 2010Q2

REPORT INFORMATION
  Report Type: 
  Country: None (occurrence: None)
  Receive Date: 20100623
  Receipt Date: 20071017
  Transmission Date: 20101027
  Serious: Yes (Hospitalization, Other)
  Sender: FDA-Public Use
  Company Number: US-PFIZER INC-2007053595

PATIENT
  Sex: Female
  Weight: 93.8 kg

DRUGS (1)
  1. SUTENT [Suspect]
     Indication: SMALL CELL CARCINOMA
     Dosage: DAILY; 4 WEEKS ON / 2 WEEKS OFF
     Route: 048
     Dates: start: 20070522, end: 20070817

REACTIONS (4)
  - ABDOMINAL PAIN [None]
  - BLOOD PRESSURE INCREASED [None]
  - DIARRHOEA [None]
  - PALMAR-PLANTAR ERYTHRODYSAESTHESIA SYNDROME [None]
